FAERS Safety Report 5212190-1 (Version None)
Quarter: 2006Q4

REPORT INFORMATION
  Report Type: 
  Country: None (occurrence: None)
  Receive Date: 20061120
  Receipt Date: 20051121
  Transmission Date: 20070319
  Serious: Yes (Hospitalization)
  Sender: FDA-Public Use
  Company Number: 2005-BP-20570BP (0)

PATIENT

DRUGS (1)
  1. MICARDIS HCT [Suspect]
     Dosage: SEE TEXT (SEE TEXT, 80 MG/25 MG), PO
     Route: 048

REACTIONS (2)
  - HYPOKALAEMIA [None]
  - HYPONATRAEMIA [None]
